FAERS Safety Report 22661592 (Version 1)
Quarter: 2023Q2

REPORT INFORMATION
  Report Type: Spontaneous
  Country: US (occurrence: US)
  Receive Date: 20230630
  Receipt Date: 20230630
  Transmission Date: 20230721
  Serious: No
  Sender: FDA-Public Use
  Company Number: US-MYLANLABS-2023M1056412

PATIENT
  Age: 39 Year
  Sex: Male
  Weight: 104 kg

DRUGS (1)
  1. ISOSULFAN BLUE [Suspect]
     Active Substance: ISOSULFAN BLUE
     Indication: Product used for unknown indication
     Dosage: 1 PERCENT
     Route: 042
     Dates: start: 20230525, end: 20230525

REACTIONS (1)
  - Incorrect route of product administration [Recovered/Resolved]

NARRATIVE: CASE EVENT DATE: 20230525
